FAERS Safety Report 10255742 (Version 1)
Quarter: 2014Q2

REPORT INFORMATION
  Report Type: Spontaneous
  Country: US (occurrence: US)
  Receive Date: 20140624
  Receipt Date: 20140624
  Transmission Date: 20141212
  Serious: Yes (Other)
  Sender: FDA-Public Use
  Company Number: US-ABBVIE-14P-163-1250066-00

PATIENT
  Sex: Male
  Weight: 124.85 kg

DRUGS (1)
  1. ANDROGEL [Suspect]
     Indication: BLOOD TESTOSTERONE DECREASED
     Dosage: TWO TO FOUR PUMPS PER DAY
     Dates: start: 201302, end: 201308

REACTIONS (1)
  - Blood urine present [Recovered/Resolved]
